FAERS Safety Report 15997921 (Version 5)
Quarter: 2020Q3

REPORT INFORMATION
  Report Type: Report from Study
  Country: US (occurrence: US)
  Receive Date: 20190222
  Receipt Date: 20200819
  Transmission Date: 20201102
  Serious: Yes (Hospitalization, Other)
  Sender: FDA-Public Use
  Company Number: US-TAKEDA-2019TUS004380

PATIENT
  Age: 72 Year
  Sex: Male
  Weight: 70 kg

DRUGS (8)
  1. METOPROLOL SUCCINATE. [Concomitant]
     Active Substance: METOPROLOL SUCCINATE
     Indication: HYPERTENSION
     Dosage: UNK
     Route: 065
  2. PRAVASTATIN. [Concomitant]
     Active Substance: PRAVASTATIN
     Indication: LOW DENSITY LIPOPROTEIN INCREASED
     Dosage: 40 MILLIGRAM, QD
     Route: 065
  3. COREG [Concomitant]
     Active Substance: CARVEDILOL
     Indication: HYPERTENSION
     Dosage: UNK
     Route: 065
  4. PRAVASTATIN. [Concomitant]
     Active Substance: PRAVASTATIN
     Dosage: 80 MILLIGRAM, QD
     Route: 065
  5. BRIGATINIB [Suspect]
     Active Substance: BRIGATINIB
     Indication: LUNG CARCINOMA CELL TYPE UNSPECIFIED STAGE IV
     Dosage: 180 MILLIGRAM, QD
     Route: 048
  6. XARELTO [Concomitant]
     Active Substance: RIVAROXABAN
     Dosage: 15 MILLIGRAM, QD
     Route: 065
  7. XARELTO [Concomitant]
     Active Substance: RIVAROXABAN
     Indication: PULMONARY EMBOLISM
     Dosage: 20 MILLIGRAM, QD
     Route: 065
  8. PLAVIX [Concomitant]
     Active Substance: CLOPIDOGREL BISULFATE
     Dosage: 75 MILLIGRAM, QD
     Route: 065

REACTIONS (8)
  - Cardiac failure congestive [Recovering/Resolving]
  - Blood pressure decreased [Unknown]
  - Cough [Unknown]
  - Neuropathy peripheral [Unknown]
  - Type 2 diabetes mellitus [Unknown]
  - Coronary artery occlusion [Not Recovered/Not Resolved]
  - Pain [Unknown]
  - Low density lipoprotein increased [Unknown]

NARRATIVE: CASE EVENT DATE: 201902
